FAERS Safety Report 8355755-0 (Version None)
Quarter: 2012Q2

REPORT INFORMATION
  Report Type: 
  Country: None (occurrence: None)
  Receive Date: 20120514
  Receipt Date: 20120507
  Transmission Date: 20120825
  Serious: No
  Sender: FDA-Public Use
  Company Number: US-PFIZER INC-2012052964

PATIENT
  Sex: Male

DRUGS (2)
  1. IBUPROFEN (ADVIL) [Suspect]
     Dosage: 400 MG, 3X/DAY
     Route: 048
     Dates: start: 20120223, end: 20120224
  2. IBUPROFEN (ADVIL) [Suspect]
     Indication: TOOTHACHE
     Dosage: 400 MG, 3X/DAY
     Route: 048
     Dates: start: 20120221, end: 20120223

REACTIONS (2)
  - EXPIRED DRUG ADMINISTERED [None]
  - DRUG INEFFECTIVE [None]
